FAERS Safety Report 8710941 (Version 3)
Quarter: 2012Q4

REPORT INFORMATION
  Report Type: 
  Country: US (occurrence: US)
  Receive Date: 20120807
  Receipt Date: 20121025
  Transmission Date: 20130627
  Serious: No
  Sender: FDA-Public Use
  Company Number: US-009507513-1207USA009276

PATIENT
  Age: 30 Year
  Sex: Male
  Weight: 83.9 kg

DRUGS (7)
  1. VICTRELIS [Suspect]
     Dosage: 800 mg, tid (every 7-9 hours with food)
     Route: 048
  2. REBETOL [Suspect]
  3. PEGASYS [Suspect]
  4. BUPROPION HYDROCHLORIDE [Concomitant]
  5. ASCORBIC ACID [Concomitant]
  6. VITAMINS (UNSPECIFIED) [Concomitant]
  7. MINERALS (UNSPECIFIED) [Concomitant]

REACTIONS (2)
  - Platelet count decreased [Unknown]
  - Neutropenia [Unknown]
